FAERS Safety Report 4984604-3 (Version None)
Quarter: 2006Q2

REPORT INFORMATION
  Report Type: 
  Country: None (occurrence: None)
  Receive Date: 20060426
  Receipt Date: 20060426
  Transmission Date: 20061013
  Serious: Yes (Hospitalization)
  Sender: FDA-Public Use
  Company Number: None

PATIENT
  Age: 89 Year
  Sex: Male
  Weight: 78.8 kg

DRUGS (9)
  1. ROSIGLITAZONE [Suspect]
     Indication: DIABETES MELLITUS
     Dosage: 8 MG DAILY   (THERAPY DATES: INCREASED 1/3/06- 3/27/06,  (STARTED 8/15/05))
     Dates: start: 20060103, end: 20060327
  2. ROSIGLITAZONE [Suspect]
     Indication: DIABETES MELLITUS
     Dosage: 8 MG DAILY   (THERAPY DATES: INCREASED 1/3/06- 3/27/06,  (STARTED 8/15/05))
     Dates: start: 20050815
  3. GLYBURIDE [Concomitant]
  4. COUMADIN [Concomitant]
  5. CAPTOPRIL [Concomitant]
  6. LANOXIN [Concomitant]
  7. FINASTERIDE [Concomitant]
  8. TEMAZEPAM [Concomitant]
  9. LOVASTATIN [Concomitant]

REACTIONS (1)
  - CARDIAC FAILURE CONGESTIVE [None]
